FAERS Safety Report 20959526 (Version 1)
Quarter: 2022Q2

REPORT INFORMATION
  Report Type: Spontaneous
  Country: US (occurrence: None)
  Receive Date: 20220614
  Receipt Date: 20220614
  Transmission Date: 20220721
  Serious: No
  Sender: FDA-Public Use
  Company Number: US-Merck Healthcare KGaA-9325552

PATIENT
  Sex: Female

DRUGS (1)
  1. SEROSTIM [Suspect]
     Active Substance: SOMATROPIN
     Indication: HIV infection
     Route: 058
     Dates: start: 201306

REACTIONS (5)
  - Decreased appetite [Unknown]
  - Diarrhoea [Unknown]
  - Product dose omission issue [Unknown]
  - Product dispensing issue [Unknown]
  - Product prescribing issue [Unknown]
